FAERS Safety Report 5725632-X (Version None)
Quarter: 2008Q2

REPORT INFORMATION
  Report Type: 
  Country: None (occurrence: None)
  Receive Date: 20080501
  Receipt Date: 20080408
  Transmission Date: 20081010
  Serious: No
  Sender: FDA-Public Use
  Company Number: US-BOEHRINGER INGELHEIM GMBH, GERMANY-2008-BP-03596BP

PATIENT
  Age: 90 Year
  Sex: Male
  Weight: 70 kg

DRUGS (12)
  1. COMBIVENT [Suspect]
     Indication: CHRONIC OBSTRUCTIVE PULMONARY DISEASE
     Route: 055
     Dates: start: 20080214
  2. COMBIVENT [Suspect]
     Indication: DYSPNOEA
  3. OXYGEN [Concomitant]
     Indication: CHRONIC OBSTRUCTIVE PULMONARY DISEASE
  4. LEVOTHYROXINE SODIUM [Concomitant]
  5. WARFARIN SODIUM [Concomitant]
  6. LIPITOR [Concomitant]
  7. FUROSEMIDE [Concomitant]
  8. MEDROL [Concomitant]
  9. ALBUTEROL [Concomitant]
     Indication: CARDIAC FAILURE CONGESTIVE
  10. ALBUTEROL [Concomitant]
     Indication: CHRONIC OBSTRUCTIVE PULMONARY DISEASE
  11. ATROVENT [Concomitant]
     Indication: CARDIAC FAILURE CONGESTIVE
  12. ATROVENT [Concomitant]
     Indication: CHRONIC OBSTRUCTIVE PULMONARY DISEASE

REACTIONS (2)
  - CONDITION AGGRAVATED [None]
  - DRUG INEFFECTIVE [None]
